FAERS Safety Report 16767633 (Version 1)
Quarter: 2019Q4

REPORT INFORMATION
  Report Type: Spontaneous
  Country: US (occurrence: US)
  Receive Date: 20190903
  Receipt Date: 20190903
  Transmission Date: 20200122
  Serious: Yes (Hospitalization)
  Sender: FDA-Public Use
  Company Number: None

PATIENT
  Age: 71 Year
  Sex: Female
  Weight: 60.75 kg

DRUGS (8)
  1. OLMESARTAN MEDOXOMIL. [Suspect]
     Active Substance: OLMESARTAN MEDOXOMIL
     Indication: HYPERTENSION
     Dosage: ?          QUANTITY:1 TABLET(S);?
     Route: 048
  2. HYDROCHLORTHYZIDE [Concomitant]
     Active Substance: HYDROCHLOROTHIAZIDE
  3. VALTREX [Concomitant]
     Active Substance: VALACYCLOVIR HYDROCHLORIDE
  4. VITAMIN D [Concomitant]
     Active Substance: VITAMIN D NOS
  5. AREDS [Concomitant]
     Active Substance: MINERALS\VITAMINS
  6. AMILODIPINE [Concomitant]
  7. VALSARTAN. [Suspect]
     Active Substance: VALSARTAN
  8. CLONIDINE. [Suspect]
     Active Substance: CLONIDINE

REACTIONS (7)
  - Nausea [None]
  - Vomiting [None]
  - Recalled product [None]
  - Hypophagia [None]
  - Ileus paralytic [None]
  - Product contamination [None]
  - Gastrointestinal pain [None]

NARRATIVE: CASE EVENT DATE: 20040701
